FAERS Safety Report 6742714-4 (Version None)
Quarter: 2010Q2

REPORT INFORMATION
  Report Type: 
  Country: None (occurrence: None)
  Receive Date: 20100526
  Receipt Date: 20090916
  Transmission Date: 20101027
  Serious: No
  Sender: FDA-Public Use
  Company Number: US-ABBOTT-09P-163-0598208-00

PATIENT
  Age: 50 Year
  Sex: Female

DRUGS (3)
  1. ZEMPLAR [Suspect]
     Indication: HYPERPARATHYROIDISM SECONDARY
     Route: 048
     Dates: start: 20090601, end: 20090601
  2. MULTIPLE UNKNOWN MEDICATIONS [Concomitant]
     Indication: ILL-DEFINED DISORDER
  3. MULTIPLE UNKNOWN MEDICATIONS [Concomitant]
     Indication: RENAL FAILURE

REACTIONS (1)
  - SOMNOLENCE [None]
